FAERS Safety Report 17204547 (Version 2)
Quarter: 2020Q2

REPORT INFORMATION
  Report Type: Report from Study
  Country: US (occurrence: US)
  Receive Date: 20191226
  Receipt Date: 20200403
  Transmission Date: 20200713
  Serious: Yes (Other)
  Sender: FDA-Public Use
  Company Number: NVSC2019US078532

PATIENT
  Age: 77 Year
  Sex: Female
  Weight: 69.9 kg

DRUGS (2)
  1. LAMPRENE [Suspect]
     Active Substance: CLOFAZIMINE
     Indication: MYCOBACTERIUM ABSCESSUS INFECTION
     Dosage: 100 MG
     Route: 048
     Dates: start: 20190910
  2. LAMPRENE [Suspect]
     Active Substance: CLOFAZIMINE
     Dosage: UNK
     Route: 048
     Dates: end: 20191018

REACTIONS (18)
  - Hot flush [Unknown]
  - Bone pain [Recovering/Resolving]
  - Dysphagia [Recovering/Resolving]
  - Diarrhoea [Unknown]
  - Urinary incontinence [Unknown]
  - Cough [Recovering/Resolving]
  - Dry eye [Recovering/Resolving]
  - Palpitations [Recovering/Resolving]
  - Depression [Recovering/Resolving]
  - Arrhythmia [Unknown]
  - Arthralgia [Recovering/Resolving]
  - Dizziness [Unknown]
  - Vision blurred [Recovered/Resolved]
  - Pharyngeal swelling [Unknown]
  - Fluid retention [Recovering/Resolving]
  - Dyspnoea [Recovering/Resolving]
  - Disseminated toxoplasmosis [Unknown]
  - Abdominal discomfort [Unknown]

NARRATIVE: CASE EVENT DATE: 20190918
